FAERS Safety Report 6554312-6 (Version None)
Quarter: 2010Q1

REPORT INFORMATION
  Report Type: 
  Country: None (occurrence: None)
  Receive Date: 20100127
  Receipt Date: 20100125
  Transmission Date: 20100710
  Serious: Yes (Hospitalization)
  Sender: FDA-Public Use
  Company Number: A0841116A

PATIENT
  Age: 46 Year
  Sex: Male

DRUGS (1)
  1. COMMIT [Suspect]
     Indication: SMOKING CESSATION THERAPY
     Route: 002

REACTIONS (15)
  - ABDOMINAL DISTENSION [None]
  - ABDOMINAL PAIN [None]
  - BINGE EATING [None]
  - COLITIS [None]
  - CONSTIPATION [None]
  - ENTEROCOLITIS [None]
  - FAECES HARD [None]
  - INSOMNIA [None]
  - INTENTIONAL DRUG MISUSE [None]
  - INTESTINAL OBSTRUCTION [None]
  - IRRITABILITY [None]
  - MOOD SWINGS [None]
  - NICOTINE DEPENDENCE [None]
  - PAIN [None]
  - VIRAL INFECTION [None]
